FAERS Safety Report 6250395-1 (Version None)
Quarter: 2009Q2

REPORT INFORMATION
  Report Type: 
  Country: None (occurrence: None)
  Receive Date: 20090630
  Receipt Date: 20090626
  Transmission Date: 20091009
  Serious: Yes (Death, Other)
  Sender: FDA-Public Use
  Company Number: CZ-BRISTOL-MYERS SQUIBB COMPANY-14673495

PATIENT
  Age: 69 Year
  Sex: Male

DRUGS (8)
  1. CYCLOPHOSPHAMIDE [Suspect]
     Indication: LYMPHOMA
     Dosage: DISEASE PROGRESSION WAS TREATED WITH 4 CYCLES IN MAY-2006
     Dates: start: 20030701
  2. DOXORUBICIN HCL [Suspect]
     Indication: LYMPHOMA
     Dates: start: 20030701
  3. VINCRISTINE [Suspect]
     Indication: LYMPHOMA
     Dates: start: 20030701
  4. CHLORAMBUCIL [Suspect]
     Indication: CHRONIC LYMPHOCYTIC LEUKAEMIA
     Dates: start: 20000601
  5. RITUXIMAB [Suspect]
     Indication: LYMPHOMA
     Dosage: RECEIVED 4 DOSES IN JUN05 RECEIVED 4 DOSES DISEASE PROGRESSION WAS TREATED WITH 4 CYCLES
  6. INTERFERON ALPHA [Suspect]
     Indication: LYMPHOMA
     Dosage: 6 DOSAGEFORM = 6 MU
  7. FLUDARABINE PHOSPHATE [Suspect]
     Indication: LYMPHOMA
     Route: 048
  8. PREDNISOLONE [Suspect]
     Indication: LYMPHOMA
     Dates: start: 20030701

REACTIONS (2)
  - PNEUMONIA FUNGAL [None]
  - PROGRESSIVE MULTIFOCAL LEUKOENCEPHALOPATHY [None]
